FAERS Safety Report 24814205 (Version 1)
Quarter: 2025Q1

REPORT INFORMATION
  Report Type: Spontaneous
  Country: CN (occurrence: CN)
  Receive Date: 20250107
  Receipt Date: 20250107
  Transmission Date: 20250408
  Serious: Yes (Hospitalization)
  Sender: SANDOZ
  Company Number: CN-002147023-NVSC2024CN247924

PATIENT
  Age: 2 Year
  Sex: Female
  Weight: 13 kg

DRUGS (2)
  1. FLUVASTATIN SODIUM [Suspect]
     Active Substance: FLUVASTATIN SODIUM
     Indication: Accidental exposure to product by child
     Dosage: 1 DOSAGE FORM, QD (1 TABLET)
     Route: 048
     Dates: start: 20240925, end: 20240925
  2. GLIPIZIDE [Suspect]
     Active Substance: GLIPIZIDE
     Indication: Accidental exposure to product by child
     Dosage: 4 DOSAGE FORM, QD (4 TABLET) (CONTROLLED RELEASE TABLET)
     Route: 048
     Dates: start: 20240925, end: 20240925

REACTIONS (11)
  - Toxicity to various agents [Recovering/Resolving]
  - Heart rate increased [Recovering/Resolving]
  - Blood pressure decreased [Recovering/Resolving]
  - Oxygen saturation decreased [Recovering/Resolving]
  - Base excess decreased [Recovering/Resolving]
  - Blood bicarbonate decreased [Recovering/Resolving]
  - Blood lactic acid increased [Recovering/Resolving]
  - Platelet count increased [Recovering/Resolving]
  - Body temperature abnormal [Unknown]
  - Vomiting [Unknown]
  - Accidental exposure to product by child [Unknown]

NARRATIVE: CASE EVENT DATE: 20240925
